FAERS Safety Report 8477626-1 (Version None)
Quarter: 2012Q2

REPORT INFORMATION
  Report Type: 
  Country: None (occurrence: None)
  Receive Date: 20120629
  Receipt Date: 20120625
  Transmission Date: 20120825
  Serious: No
  Sender: FDA-Public Use
  Company Number: US-PFIZER INC-2012152665

PATIENT
  Sex: Male
  Weight: 68.93 kg

DRUGS (8)
  1. LIPITOR [Concomitant]
     Dosage: UNK
  2. ZEBETA [Concomitant]
     Dosage: UNK
  3. PLAVIX [Concomitant]
     Dosage: UNK
  4. ACETYLSALICYLIC ACID [Concomitant]
     Dosage: 81 MG, UNK
  5. TIKOSYN [Suspect]
     Indication: ATRIAL FIBRILLATION
     Dosage: 0.125 MG, 2X/DAY
     Route: 048
     Dates: start: 20120611
  6. COUMADIN [Concomitant]
     Dosage: UNK
  7. AMIODARONE HCL [Suspect]
     Indication: ATRIAL FIBRILLATION
     Dosage: UNK
     Dates: end: 20120601
  8. ALLOPURINOL [Concomitant]
     Dosage: UNK

REACTIONS (4)
  - HEADACHE [None]
  - INTERNATIONAL NORMALISED RATIO ABNORMAL [None]
  - ACTIVITIES OF DAILY LIVING IMPAIRED [None]
  - DIZZINESS [None]
